FAERS Safety Report 17807307 (Version 1)
Quarter: 2020Q2

REPORT INFORMATION
  Report Type: Other
  Country: DE (occurrence: DE)
  Receive Date: 20200520
  Receipt Date: 20200520
  Transmission Date: 20200714
  Serious: Yes (Life-Threatening, Hospitalization)
  Sender: FDA-Public Use
  Company Number: DE-LUPIN PHARMACEUTICALS INC.-2019-08820

PATIENT
  Age: 28 Year
  Sex: Male
  Weight: 78 kg

DRUGS (2)
  1. QUETIAPINE 25 MG TABLETS [Suspect]
     Active Substance: QUETIAPINE
     Indication: SLEEP DISORDER
     Dosage: 4 DOSAGE FORM, QD (4 TABLETS IN THE EVENING)
     Route: 065
     Dates: start: 20190906
  2. QUETIAPINE 25 MG TABLETS [Suspect]
     Active Substance: QUETIAPINE
     Indication: BIPOLAR DISORDER
     Dosage: 1 DOSAGE FORM, QD
     Route: 065
     Dates: start: 20190815, end: 20190905

REACTIONS (1)
  - Fall [Unknown]

NARRATIVE: CASE EVENT DATE: 20190906
